FAERS Safety Report 12546638 (Version 1)
Quarter: 2016Q3

REPORT INFORMATION
  Report Type: Other
  Country: US (occurrence: US)
  Receive Date: 20160711
  Receipt Date: 20160711
  Transmission Date: 20161109
  Serious: Yes (Life-Threatening, Hospitalization)
  Sender: FDA-Public Use
  Company Number: US-ENDO PHARMACEUTICALS INC-2016-004249

PATIENT
  Age: 60 Year
  Sex: Female

DRUGS (1)
  1. ALLOPURINOL TABLETS [Suspect]
     Active Substance: ALLOPURINOL
     Indication: GOUT
     Route: 065

REACTIONS (5)
  - Acute kidney injury [Recovered/Resolved]
  - Toxic epidermal necrolysis [Recovering/Resolving]
  - Rhabdomyolysis [Recovered/Resolved]
  - Acute respiratory failure [Unknown]
  - Hypovolaemia [Recovered/Resolved]
